FAERS Safety Report 8447885-X (Version None)
Quarter: 2012Q2

REPORT INFORMATION
  Report Type: 
  Country: None (occurrence: None)
  Receive Date: 20120612
  Receipt Date: 20120529
  Transmission Date: 20120825
  Serious: Yes (Death)
  Sender: FDA-Public Use
  Company Number: UTC-019409

PATIENT
  Age: 69 Year
  Sex: Female
  Weight: 51.4 kg

DRUGS (2)
  1. REMODULIN [Suspect]
     Indication: PULMONARY HYPERTENSION
     Dosage: (80 NANGM), INTRAVENOUS
     Route: 042
     Dates: start: 20090129
  2. TRACLEER [Concomitant]

REACTIONS (1)
  - DEATH [None]
